FAERS Safety Report 8611346-5 (Version None)
Quarter: 2012Q3

REPORT INFORMATION
  Report Type: 
  Country: None (occurrence: None)
  Receive Date: 20120822
  Receipt Date: 20120816
  Transmission Date: 20120928
  Serious: Yes (Other)
  Sender: FDA-Public Use
  Company Number: BR-ABBOTT-12P-020-0966275-00

PATIENT
  Sex: Male
  Weight: 72 kg

DRUGS (3)
  1. VALPROIC ACID [Suspect]
  2. VALPROIC ACID [Suspect]
     Indication: PRODUCT USED FOR UNKNOWN INDICATION
     Dates: start: 20120803
  3. VALPROIC ACID [Suspect]

REACTIONS (3)
  - CONVULSION [None]
  - SKIN WOUND [None]
  - HYPERSENSITIVITY [None]
